FAERS Safety Report 14721054 (Version 3)
Quarter: 2018Q3

REPORT INFORMATION
  Report Type: Spontaneous
  Country: US (occurrence: US)
  Receive Date: 20180405
  Receipt Date: 20180716
  Transmission Date: 20181010
  Serious: Yes (Congenital Anomaly, Other)
  Sender: FDA-Public Use
  Company Number: PHEH2018US012841

PATIENT
  Sex: Female

DRUGS (2)
  1. ZOFRAN [Suspect]
     Active Substance: ONDANSETRON HYDROCHLORIDE
     Indication: FOETAL EXPOSURE DURING PREGNANCY
     Route: 064
  2. ZOFRAN [Suspect]
     Active Substance: ONDANSETRON HYDROCHLORIDE
     Indication: FOETAL EXPOSURE DURING PREGNANCY
     Route: 064

REACTIONS (44)
  - Heart disease congenital [Unknown]
  - Takayasu^s arteritis [Unknown]
  - Cardiomegaly [Unknown]
  - Pharyngitis streptococcal [Unknown]
  - Atrial septal defect [Unknown]
  - Left-to-right cardiac shunt [Unknown]
  - Pneumonia [Unknown]
  - Asthma [Unknown]
  - Varicella [Unknown]
  - Chills [Unknown]
  - Influenza [Unknown]
  - Eye pruritus [Unknown]
  - Visual acuity reduced [Unknown]
  - Scleral discolouration [Unknown]
  - Mitral valve incompetence [Unknown]
  - Anaemia [Unknown]
  - Pyrexia [Unknown]
  - Asthenia [Unknown]
  - Dyspnoea [Unknown]
  - Abdominal pain [Unknown]
  - Tricuspid valve incompetence [Unknown]
  - Cardiac murmur [Unknown]
  - Urinary tract infection [Unknown]
  - Rhinorrhoea [Unknown]
  - Bronchitis [Unknown]
  - Back pain [Unknown]
  - Foetal exposure during pregnancy [Unknown]
  - Dermatitis contact [Unknown]
  - Hypoaesthesia [Unknown]
  - Scoliosis [Unknown]
  - Supraventricular extrasystoles [Unknown]
  - Decreased appetite [Unknown]
  - Sneezing [Unknown]
  - Cough [Unknown]
  - Wheezing [Unknown]
  - Rhinitis allergic [Unknown]
  - Obesity [Unknown]
  - Myopia [Unknown]
  - Eye irritation [Unknown]
  - Acanthosis nigricans [Unknown]
  - Eczema [Unknown]
  - Astigmatism [Unknown]
  - Oropharyngeal pain [Unknown]
  - Injury [Unknown]
